FAERS Safety Report 4349420-4 (Version None)
Quarter: 2004Q2

REPORT INFORMATION
  Report Type: 
  Country: None (occurrence: None)
  Receive Date: 20040428
  Receipt Date: 20040401
  Transmission Date: 20050107
  Serious: Yes (Hospitalization, Other)
  Sender: FDA-Public Use
  Company Number: PHBS2004PT04383

PATIENT
  Age: 46 Year
  Sex: Male
  Weight: 55 kg

DRUGS (13)
  1. LEPONEX [Suspect]
     Indication: SCHIZOPHRENIA
     Dosage: 300 MG/DAY
     Route: 048
     Dates: start: 20030204, end: 20040220
  2. BIPERIDEN HYDROCHLORIDE [Concomitant]
     Dosage: 4 MG/DAY
     Route: 048
     Dates: start: 20030324
  3. LORAZEPAM [Concomitant]
     Dosage: 7.5 MG/DAY
     Route: 048
     Dates: start: 20030117
  4. FLURAZEPAM HCL [Concomitant]
     Dosage: 30 MG/DAY
     Route: 048
     Dates: start: 20030211, end: 20040220
  5. ALUMINUM HYDROXIDE GEL [Concomitant]
     Dosage: 1 G/DAY
     Route: 048
     Dates: start: 20031230, end: 20040220
  6. CALCIUM CARBONATE [Concomitant]
     Dosage: 1 G/DAY
     Route: 048
     Dates: start: 20031230, end: 20040220
  7. ZUCLOPENTHIXOL DECANOATE [Concomitant]
     Route: 042
     Dates: start: 20030110, end: 20040201
  8. RETINOL [Concomitant]
     Dates: start: 20040203, end: 20040220
  9. THIAMINE HCL [Concomitant]
     Dates: start: 20040203, end: 20040220
  10. RIBOFLAVIN [Concomitant]
     Dates: start: 20040203, end: 20040220
  11. PYRIDOXINE HYDROCHLORIDE [Concomitant]
     Dates: start: 20040203, end: 20040220
  12. CYANOCOBALAMIN [Concomitant]
     Dates: start: 20040203, end: 20040220
  13. NICOTINAMIDE [Concomitant]
     Dates: start: 20040203, end: 20040220

REACTIONS (6)
  - BLOOD CREATINE PHOSPHOKINASE INCREASED [None]
  - DERMATOFIBROSARCOMA [None]
  - MALAISE [None]
  - MUSCULAR WEAKNESS [None]
  - MYALGIA [None]
  - RHABDOMYOLYSIS [None]
